FAERS Safety Report 19903764 (Version 1)
Quarter: 2021Q4

REPORT INFORMATION
  Report Type: Spontaneous
  Country: IN (occurrence: IN)
  Receive Date: 20211001
  Receipt Date: 20211001
  Transmission Date: 20220303
  Serious: Yes (Hospitalization, Other)
  Sender: FDA-Public Use
  Company Number: IN-MLMSERVICE-20210915-3106990-1

PATIENT

DRUGS (9)
  1. EFAVIRENZ\LAMIVUDINE\TENOFOVIR DISOPROXIL FUMARATE [Suspect]
     Active Substance: EFAVIRENZ\LAMIVUDINE\TENOFOVIR DISOPROXIL FUMARATE
     Indication: Antiretroviral therapy
     Dosage: UNK, FIRST-LINE THERAPY
     Route: 065
  2. ZIDOVUDINE [Suspect]
     Active Substance: ZIDOVUDINE
     Indication: Antiretroviral therapy
     Dosage: UNK, SECOND-LINE THERAPY
     Route: 065
  3. LAMIVUDINE [Suspect]
     Active Substance: LAMIVUDINE
     Indication: Antiretroviral therapy
     Dosage: UNK, SECOND-LINE THERAPY
     Route: 065
  4. ATAZANAVIR\RITONAVIR [Suspect]
     Active Substance: ATAZANAVIR\RITONAVIR
     Indication: Antiretroviral therapy
     Dosage: UNK, SECOND-LINE THERAPY
     Route: 065
  5. FLUCONAZOLE [Suspect]
     Active Substance: FLUCONAZOLE
     Indication: Oesophageal candidiasis
     Dosage: UNK
     Route: 065
  6. DAPSONE [Concomitant]
     Active Substance: DAPSONE
     Indication: Prophylaxis
     Dosage: UNK
     Route: 065
  7. NITAZOXANIDE [Concomitant]
     Active Substance: NITAZOXANIDE
     Indication: Cryptosporidiosis infection
     Dosage: UNK
     Route: 065
  8. NITAZOXANIDE [Concomitant]
     Active Substance: NITAZOXANIDE
     Dosage: UNK, DOSE INCREASED
     Route: 065
  9. AZITHROMYCIN ANHYDROUS [Concomitant]
     Active Substance: AZITHROMYCIN ANHYDROUS
     Indication: Cryptosporidiosis infection
     Dosage: UNK, QD (ONCE DAILY)
     Route: 065

REACTIONS (10)
  - Diarrhoea [Recovering/Resolving]
  - Dysphagia [Recovering/Resolving]
  - Cachexia [Unknown]
  - Ichthyosis [Unknown]
  - Dehydration [Unknown]
  - Oral candidiasis [Unknown]
  - Depression [Unknown]
  - Electrolyte imbalance [Unknown]
  - Treatment failure [Unknown]
  - Treatment noncompliance [Unknown]
